FAERS Safety Report 13965552 (Version 3)
Quarter: 2017Q4

REPORT INFORMATION
  Report Type: Spontaneous
  Country: JP (occurrence: JP)
  Receive Date: 20170913
  Receipt Date: 20171006
  Transmission Date: 20180320
  Serious: Yes (Hospitalization, Other)
  Sender: FDA-Public Use
  Company Number: JP-PFIZER INC-2017396416

PATIENT
  Age: 93 Year
  Sex: Female

DRUGS (2)
  1. AMLODIN [Suspect]
     Active Substance: AMLODIPINE BESYLATE
     Dosage: 5 MG, 1X/DAY (MORNING)
     Route: 048
  2. ALEVIATIN [Suspect]
     Active Substance: PHENYTOIN SODIUM
     Dosage: 150 MG, DAILY (100MG IN THE MORNING AND 50MG IN THE EVENING)
     Route: 048

REACTIONS (2)
  - Renal impairment [Unknown]
  - Cardiac failure [Unknown]

NARRATIVE: CASE EVENT DATE: 20170902
